FAERS Safety Report 16588790 (Version 1)
Quarter: 2019Q3

REPORT INFORMATION
  Report Type: Other
  Country: DE (occurrence: DE)
  Receive Date: 20190718
  Receipt Date: 20190718
  Transmission Date: 20191004
  Serious: Yes (Hospitalization, Other)
  Sender: FDA-Public Use
  Company Number: DE-CELLTRION INC.-2019DE022713

PATIENT

DRUGS (14)
  1. RITUXIMAB (UNKNOWN) [Suspect]
     Active Substance: RITUXIMAB
     Dosage: 375 MG/M2
     Route: 042
  2. VINCRISTIN [Suspect]
     Active Substance: VINCRISTINE
     Dosage: 2 MG
     Route: 042
  3. DOXORUBICIN [Suspect]
     Active Substance: DOXORUBICIN
     Dosage: 50 MG/M2
     Route: 042
  4. BENZYDAMIN [Concomitant]
     Dosage: 1.5 MG/ML, 1-1-1-1
     Route: 048
  5. TADALAFIL. [Concomitant]
     Active Substance: TADALAFIL
     Dosage: 20 MG, 0-0-2,
     Route: 048
  6. PARACETAMOL [Concomitant]
     Active Substance: ACETAMINOPHEN
     Dosage: 2 G
     Route: 048
     Dates: start: 20180211
  7. ACICLOVIR [Concomitant]
     Active Substance: ACYCLOVIR
     Dosage: 400 MG, 1-0-1
     Route: 048
  8. CYCLOPHOSPHAMID [Suspect]
     Active Substance: CYCLOPHOSPHAMIDE
     Dosage: 750 MG/M2
     Route: 042
  9. FUROSEMIDE. [Concomitant]
     Active Substance: FUROSEMIDE
     Dosage: 40 MG, 1-0-0
     Route: 048
  10. ALPHA LIPOGAMMA [Concomitant]
     Dosage: 600 MG, 0-1-0,
     Route: 048
  11. FILGRASTIM [Suspect]
     Active Substance: FILGRASTIM
     Dosage: UNK
     Route: 058
  12. PANTOPRAZOL [Concomitant]
     Active Substance: PANTOPRAZOLE SODIUM
     Dosage: 40 MG, 1-0-0
     Route: 048
  13. COTRIM FORTE [Concomitant]
     Active Substance: SULFAMETHOXAZOLE\TRIMETHOPRIM
     Dosage: 800|160 MG, 1-0-0
     Route: 048
  14. SPIRONOLACTON [Concomitant]
     Active Substance: SPIRONOLACTONE
     Dosage: 50 MG, 1-0-0
     Route: 048

REACTIONS (6)
  - Diarrhoea [Unknown]
  - Pyrexia [Unknown]
  - Dry mouth [Unknown]
  - Paraesthesia [Unknown]
  - Erysipelas [Unknown]
  - Abdominal distension [Unknown]
